FAERS Safety Report 12934701 (Version 1)
Quarter: 2016Q4

REPORT INFORMATION
  Report Type: Report from Study
  Country: KR (occurrence: KR)
  Receive Date: 20161111
  Receipt Date: 20161111
  Transmission Date: 20170207
  Serious: Yes (Death, Hospitalization, Other)
  Sender: FDA-Public Use
  Company Number: KR-TAKEDA-2016MPI003260

PATIENT
  Age: 69 Year
  Sex: Female
  Weight: 51 kg

DRUGS (17)
  1. PREDNISONE. [Suspect]
     Active Substance: PREDNISONE
     Indication: PLASMA CELL MYELOMA
     Dosage: 90 MG, QD
     Route: 048
     Dates: start: 20160201
  2. LECTACIN [Concomitant]
     Indication: URINARY TRACT INFECTION
     Dosage: 500 MG, QD
     Route: 048
     Dates: start: 20160211
  3. VELCADE [Suspect]
     Active Substance: BORTEZOMIB
     Indication: PLASMA CELL MYELOMA
     Dosage: 1.95 MG, QD
     Route: 058
     Dates: start: 20160201
  4. MELPHALAN [Concomitant]
     Active Substance: MELPHALAN
     Indication: PLASMA CELL MYELOMA
     Dosage: 14 MG, QD
     Route: 048
     Dates: start: 20160201
  5. TARGIN [Concomitant]
     Active Substance: NALOXONE HYDROCHLORIDE\OXYCODONE HYDROCHLORIDE
     Indication: BACK PAIN
     Dosage: UNK, BID
     Route: 048
     Dates: start: 20160215
  6. GASMOTIN [Concomitant]
     Active Substance: MOSAPRIDE CITRATE
     Indication: GASTROINTESTINAL DISORDER THERAPY
     Dosage: 15 MG, TID
     Route: 048
     Dates: start: 20160211
  7. DARATUMUMAB [Suspect]
     Active Substance: DARATUMUMAB
     Indication: PLASMA CELL MYELOMA
     Dosage: UNK
     Route: 042
  8. ALAXYL Q [Concomitant]
     Indication: CONSTIPATION
     Dosage: 24 ML, TID
     Route: 048
     Dates: start: 20160229
  9. CLEACOZOLE [Concomitant]
     Indication: URINARY TRACT INFECTION
     Dosage: 100 MG, BID
     Route: 048
     Dates: start: 20160211
  10. MAGO [Concomitant]
     Indication: CONSTIPATION
     Dosage: 1000 MG, BID
     Route: 048
     Dates: start: 20160222
  11. GABAPENTIN. [Concomitant]
     Active Substance: GABAPENTIN
     Indication: BACK PAIN
     Dosage: 900 MG, TID
     Route: 048
     Dates: start: 20160107
  12. EPERISONE [Concomitant]
     Active Substance: EPERISONE
     Indication: BACK PAIN
     Dosage: UNK, TID
     Route: 048
     Dates: start: 20160107
  13. SODIUM ALGINATE [Concomitant]
     Active Substance: SODIUM ALGINATE
     Indication: ABDOMINAL PAIN UPPER
     Dosage: 30 MG, TID
     Route: 048
     Dates: start: 20160121
  14. INSTANYL [Concomitant]
     Active Substance: FENTANYL
     Indication: BACK PAIN
     Dosage: 50 ?G, UNK
     Route: 045
     Dates: start: 20160212
  15. MEGACE [Concomitant]
     Active Substance: MEGESTROL ACETATE
     Indication: DECREASED APPETITE
     Dosage: 2500 MG, QD
     Route: 048
     Dates: start: 20160225
  16. NEXIUM [Concomitant]
     Active Substance: ESOMEPRAZOLE MAGNESIUM
     Indication: GASTROINTESTINAL DISORDER
     Dosage: 20 MG, QD
     Route: 048
     Dates: start: 20160126
  17. RESOLOR [Concomitant]
     Active Substance: PRUCALOPRIDE SUCCINATE
     Indication: CONSTIPATION
     Dosage: 2 MG, QD
     Route: 048
     Dates: start: 20160225

REACTIONS (2)
  - Osteonecrosis [Not Recovered/Not Resolved]
  - Septic shock [Fatal]

NARRATIVE: CASE EVENT DATE: 20160411
